FAERS Safety Report 9934899 (Version 1)
Quarter: 2014Q1

REPORT INFORMATION
  Report Type: Report from Study
  Country: CA (occurrence: CA)
  Receive Date: 20140228
  Receipt Date: 20140228
  Transmission Date: 20141002
  Serious: Yes (Other)
  Sender: FDA-Public Use
  Company Number: CA-ABBVIE-14P-028-1207840-00

PATIENT
  Sex: Female

DRUGS (2)
  1. HUMIRA [Suspect]
     Indication: CROHN^S DISEASE
     Route: 058
     Dates: start: 20120812
  2. HUMIRA [Suspect]
     Route: 058

REACTIONS (3)
  - Fistula [Not Recovered/Not Resolved]
  - Fistula [Not Recovered/Not Resolved]
  - Fistula [Not Recovered/Not Resolved]
